FAERS Safety Report 21479967 (Version 1)
Quarter: 2022Q4

REPORT INFORMATION
  Report Type: Spontaneous
  Country: IN (occurrence: IN)
  Receive Date: 20221019
  Receipt Date: 20221019
  Transmission Date: 20230113
  Serious: Yes (Hospitalization, Other)
  Sender: FDA-Public Use
  Company Number: IN-AMGEN-INDSP2022174245

PATIENT
  Sex: Female

DRUGS (2)
  1. CINACALCET HYDROCHLORIDE [Suspect]
     Active Substance: CINACALCET HYDROCHLORIDE
     Indication: Hyperparathyroidism
     Dosage: 30 MILLIGRAM, QD
     Route: 048
  2. CINACALCET HYDROCHLORIDE [Suspect]
     Active Substance: CINACALCET HYDROCHLORIDE
     Indication: Hypercalcaemia

REACTIONS (12)
  - Failure to thrive [Recovering/Resolving]
  - Hyperparathyroidism [Recovered/Resolved]
  - Off label use [Unknown]
  - Hypotonia [Unknown]
  - Underweight [Recovered/Resolved]
  - Thyroid mass [Unknown]
  - Developmental delay [Recovering/Resolving]
  - Blood parathyroid hormone decreased [Unknown]
  - Blood alkaline phosphatase increased [Recovering/Resolving]
  - Blood 25-hydroxycholecalciferol decreased [Recovered/Resolved]
  - Constipation [Unknown]
  - Hypocalcaemia [Unknown]
